FAERS Safety Report 6547456-6 (Version None)
Quarter: 2010Q1

REPORT INFORMATION
  Report Type: 
  Country: None (occurrence: None)
  Receive Date: 20100122
  Receipt Date: 20100118
  Transmission Date: 20100710
  Serious: Yes (Other)
  Sender: FDA-Public Use
  Company Number: TW-GENENTECH-279968

PATIENT
  Age: 50 Year
  Sex: Female

DRUGS (3)
  1. ACTIVASE [Suspect]
     Indication: RETINAL HAEMORRHAGE
     Dosage: 50 A?G, SINGLE
     Route: 031
  2. SULFUR HEXAFLUORIDE GAS [Suspect]
     Indication: RETINAL HAEMORRHAGE
     Dosage: 0.3-0.4 ML, SINGLE
     Route: 031
  3. BETADINE [Concomitant]
     Indication: DRUG USE FOR UNKNOWN INDICATION
     Dosage: UNK %, UNK

REACTIONS (1)
  - VITREOUS HAEMORRHAGE [None]
